FAERS Safety Report 4318264-1 (Version None)
Quarter: 2004Q1

REPORT INFORMATION
  Report Type: 
  Country: None (occurrence: None)
  Receive Date: 20040315
  Receipt Date: 20040226
  Transmission Date: 20041129
  Serious: Yes (Hospitalization)
  Sender: FDA-Public Use
  Company Number: 187699

PATIENT
  Age: 47 Year
  Sex: Female

DRUGS (5)
  1. AVONEX [Suspect]
     Indication: MULTIPLE SCLEROSIS
     Dosage: 30M MCG QW IM
     Dates: start: 20030327, end: 20031029
  2. SOMA [Concomitant]
  3. WELLBUTRIN [Concomitant]
  4. LASIX [Concomitant]
  5. DARVOCET-N 100 [Concomitant]

REACTIONS (37)
  - ABDOMINAL PAIN [None]
  - ACCIDENT AT WORK [None]
  - ACUTE RESPIRATORY DISTRESS SYNDROME [None]
  - ANAEMIA [None]
  - BLOOD CHLORIDE DECREASED [None]
  - BLOOD SODIUM DECREASED [None]
  - BLOOD UREA INCREASED [None]
  - CHEST PAIN [None]
  - COLITIS [None]
  - DEHYDRATION [None]
  - ELECTROCARDIOGRAM ST-T SEGMENT DEPRESSION [None]
  - ELECTROCARDIOGRAM T WAVE ABNORMAL [None]
  - EYE DISORDER [None]
  - FAECALITH [None]
  - HAEMATOCHEZIA [None]
  - HERPES OESOPHAGITIS [None]
  - HERPES ZOSTER [None]
  - IMMUNOSUPPRESSION [None]
  - INTERVERTEBRAL DISC DISORDER [None]
  - LEUKOCYTOSIS [None]
  - MYOCARDIAL INFARCTION [None]
  - NOSOCOMIAL INFECTION [None]
  - PALPITATIONS [None]
  - PANCREATITIS [None]
  - PERITONITIS BACTERIAL [None]
  - PLATELET COUNT INCREASED [None]
  - PLEURAL EFFUSION [None]
  - PNEUMONIA [None]
  - POSTOPERATIVE INFECTION [None]
  - PROCEDURAL COMPLICATION [None]
  - PYREXIA [None]
  - SEPTIC SHOCK [None]
  - STAPHYLOCOCCAL INFECTION [None]
  - STRESS SYMPTOMS [None]
  - SUPRAVENTRICULAR TACHYCARDIA [None]
  - TOOTH ABSCESS [None]
  - VOMITING [None]
